FAERS Safety Report 25851985 (Version 5)
Quarter: 2025Q4

REPORT INFORMATION
  Report Type: Report from Study
  Country: US (occurrence: US)
  Receive Date: 20250926
  Receipt Date: 20251031
  Transmission Date: 20260118
  Serious: Yes (Other)
  Sender: ACADIA PHARMACEUTICALS
  Company Number: US-ACADIA PHARMACEUTICALS INC.-ACA-2025-TRF-010661

PATIENT
  Age: 36 Year
  Sex: Female
  Weight: 51 kg

DRUGS (1)
  1. DAYBUE [Suspect]
     Active Substance: TROFINETIDE
     Indication: Rett syndrome
     Dosage: 25 MILLILITER, BID
     Route: 048

REACTIONS (4)
  - Transient ischaemic attack [Unknown]
  - Behaviour disorder [Not Recovered/Not Resolved]
  - General physical health deterioration [Not Recovered/Not Resolved]
  - Underdose [Unknown]

NARRATIVE: CASE EVENT DATE: 20250911
